FAERS Safety Report 23759792 (Version 1)
Quarter: 2024Q2

REPORT INFORMATION
  Report Type: Report from Study
  Country: US (occurrence: US)
  Receive Date: 20240419
  Receipt Date: 20240419
  Transmission Date: 20240716
  Serious: Yes (Hospitalization)
  Sender: FDA-Public Use
  Company Number: US-ACADIA PHARMACEUTICALS INC.-ACA-2024-PIM-001472

PATIENT
  Age: 56 Year
  Sex: Male

DRUGS (22)
  1. NUPLAZID [Suspect]
     Active Substance: PIMAVANSERIN TARTRATE
     Indication: Parkinson^s disease
     Dosage: 10 MILLIGRAM, QD
     Route: 048
     Dates: start: 20231110
  2. NOVOLOG [Concomitant]
     Active Substance: INSULIN ASPART
     Dosage: UNK
  3. OZEMPIC [Concomitant]
     Active Substance: SEMAGLUTIDE
  4. FLUDROCORTISONE [Concomitant]
     Active Substance: FLUDROCORTISONE
  5. LANTUS [Concomitant]
     Active Substance: INSULIN GLARGINE
  6. MIRTAZAPINE [Concomitant]
     Active Substance: MIRTAZAPINE
  7. PRAZOSIN [Concomitant]
     Active Substance: PRAZOSIN
  8. BUSPAR [Concomitant]
     Active Substance: BUSPIRONE HYDROCHLORIDE
  9. CARAFATE [Concomitant]
     Active Substance: SUCRALFATE
  10. PREGABALIN [Concomitant]
     Active Substance: PREGABALIN
  11. DULOXETINE [Concomitant]
     Active Substance: DULOXETINE
  12. FAMOTIDINE [Concomitant]
     Active Substance: FAMOTIDINE
  13. XARELTO [Concomitant]
     Active Substance: RIVAROXABAN
  14. HYDROXYZINE PAMOATE [Concomitant]
     Active Substance: HYDROXYZINE PAMOATE
  15. ALBUTEROL SULFATE [Concomitant]
     Active Substance: ALBUTEROL SULFATE
  16. ONDANSETRON [Concomitant]
     Active Substance: ONDANSETRON
  17. METOPROLOL [Concomitant]
     Active Substance: METOPROLOL
  18. METFORMIN [Concomitant]
     Active Substance: METFORMIN HYDROCHLORIDE
  19. DIGOXIN [Concomitant]
     Active Substance: DIGOXIN
  20. AUVELITY [Concomitant]
     Active Substance: BUPROPION HYDROCHLORIDE\DEXTROMETHORPHAN HYDROBROMIDE
  21. LISINOPRIL [Concomitant]
     Active Substance: LISINOPRIL
  22. CARBIDOPA LEVODOPA [Concomitant]
     Active Substance: CARBIDOPA\LEVODOPA

REACTIONS (4)
  - Bladder disorder [Recovered/Resolved]
  - Bladder catheterisation [Recovered/Resolved]
  - COVID-19 [Unknown]
  - Product dose omission in error [Unknown]

NARRATIVE: CASE EVENT DATE: 20240101
